FAERS Safety Report 4749578-9 (Version None)
Quarter: 2005Q3

REPORT INFORMATION
  Report Type: 
  Country: None (occurrence: None)
  Receive Date: 20050822
  Receipt Date: 20050620
  Transmission Date: 20060218
  Serious: Yes (Hospitalization)
  Sender: FDA-Public Use
  Company Number: FR-GLAXOSMITHKLINE-B0385331A

PATIENT
  Age: 82 Year
  Sex: Male

DRUGS (11)
  1. AUGMENTIN '125' [Suspect]
     Indication: SEPSIS SYNDROME
     Dosage: 3G PER DAY
     Route: 042
     Dates: start: 20050505, end: 20050510
  2. SERETIDE [Suspect]
     Route: 055
     Dates: start: 20050505, end: 20050519
  3. PYOSTACINE [Suspect]
     Dosage: 6UNIT PER DAY
     Route: 048
     Dates: start: 20050511, end: 20050516
  4. OFLOCET [Suspect]
     Dosage: 200MG PER DAY
     Route: 048
     Dates: start: 20050505, end: 20050510
  5. TRIATEC [Suspect]
     Route: 048
     Dates: end: 20050513
  6. LIPANTHYL [Suspect]
     Route: 048
     Dates: end: 20050510
  7. VENTOLIN [Concomitant]
     Route: 065
     Dates: end: 20050517
  8. COUMADIN [Concomitant]
     Route: 065
     Dates: end: 20050516
  9. RED BLOOD CELLS [Concomitant]
     Dosage: 3UNIT CUMULATIVE DOSE
     Route: 042
  10. DIFFU K [Concomitant]
     Route: 048
  11. OMEPRAZOLE [Concomitant]
     Route: 065
     Dates: start: 20050501

REACTIONS (3)
  - AGRANULOCYTOSIS [None]
  - PYREXIA [None]
  - WHITE BLOOD CELL COUNT DECREASED [None]
